FAERS Safety Report 7215407-7 (Version None)
Quarter: 2011Q1

REPORT INFORMATION
  Report Type: 
  Country: None (occurrence: None)
  Receive Date: 20110104
  Receipt Date: 20110104
  Transmission Date: 20110831
  Serious: Yes (Disabling)
  Sender: FDA-Public Use
  Company Number: None

PATIENT
  Age: 58 Year
  Sex: Female
  Weight: 77.1115 kg

DRUGS (1)
  1. DIVALPROEX 500 MG 24HR -ER-SA TAB V.A. PRECRIBED, -UNKNOWN- [Suspect]
     Indication: BIPOLAR I DISORDER
     Dosage: 500 MG TAB ONCE A DAY OROPHARINGEAL
     Route: 049
     Dates: start: 20101218, end: 20101230

REACTIONS (9)
  - DYSPNOEA [None]
  - HYPOPHAGIA [None]
  - OLIGURIA [None]
  - ARTHRALGIA [None]
  - BACK PAIN [None]
  - INSOMNIA [None]
  - PRURITUS [None]
  - CHEST DISCOMFORT [None]
  - NIGHT SWEATS [None]
